FAERS Safety Report 6679111-6 (Version None)
Quarter: 2010Q2

REPORT INFORMATION
  Report Type: 
  Country: None (occurrence: None)
  Receive Date: 20100409
  Receipt Date: 20100322
  Transmission Date: 20101027
  Serious: Yes (Hospitalization)
  Sender: FDA-Public Use
  Company Number: JPI-P-010045

PATIENT
  Age: 30 Year
  Sex: Male

DRUGS (2)
  1. LUVOX [Suspect]
     Indication: DRUG USE FOR UNKNOWN INDICATION
     Dosage: (20 DOSAGE FORMS), ORAL
     Route: 048
  2. LUVOX [Suspect]
     Indication: SUICIDE ATTEMPT
     Dosage: (20 DOSAGE FORMS), ORAL
     Route: 048

REACTIONS (2)
  - HYPOPHOSPHATAEMIA [None]
  - SUICIDE ATTEMPT [None]
